FAERS Safety Report 9451569 (Version 1)
Quarter: 2013Q3

REPORT INFORMATION
  Report Type: Spontaneous
  Country: CA (occurrence: CA)
  Receive Date: 20130811
  Receipt Date: 20130811
  Transmission Date: 20140515
  Serious: Yes (Death)
  Sender: FDA-Public Use
  Company Number: CA-CUBIST PHARMACEUTICAL-2012CBST000015

PATIENT
  Sex: 0

DRUGS (2)
  1. CUBICIN [Suspect]
     Indication: ENDOCARDITIS
     Dosage: UNK
     Route: 065
  2. LINEZOLID [Concomitant]
     Indication: ENDOCARDITIS

REACTIONS (1)
  - Treatment failure [Fatal]
